FAERS Safety Report 9303009 (Version 1)
Quarter: 2013Q2

REPORT INFORMATION
  Report Type: Spontaneous
  Country: GB (occurrence: GB)
  Receive Date: 20130522
  Receipt Date: 20130522
  Transmission Date: 20140414
  Serious: Yes (Other)
  Sender: FDA-Public Use
  Company Number: GB-BRISTOL-MYERS SQUIBB COMPANY-18905083

PATIENT
  Age: 58 Year
  Sex: Female

DRUGS (1)
  1. ABILIFY TABS [Suspect]
     Indication: SCHIZOPHRENIA
     Route: 048
     Dates: start: 2006

REACTIONS (1)
  - Breast cancer [Unknown]
